FAERS Safety Report 23916551 (Version 2)
Quarter: 2024Q3

REPORT INFORMATION
  Report Type: Spontaneous
  Country: SI (occurrence: SI)
  Receive Date: 20240529
  Receipt Date: 20240926
  Transmission Date: 20241016
  Serious: Yes (Life-Threatening, Hospitalization, Disabling, Other)
  Sender: NOVARTIS
  Company Number: SI-002147023-NVSC2024SI076385

PATIENT
  Age: 47 Year
  Sex: Male

DRUGS (1)
  1. MAYZENT [Suspect]
     Active Substance: SIPONIMOD
     Indication: Secondary progressive multiple sclerosis
     Dosage: 2 MG, QD (1X1)
     Route: 048
     Dates: start: 20211202, end: 20240105

REACTIONS (8)
  - Progressive multifocal leukoencephalopathy [Recovered/Resolved]
  - Hemiparesis [Unknown]
  - Blindness [Unknown]
  - Dysarthria [Unknown]
  - Affect lability [Unknown]
  - Dysphagia [Unknown]
  - Lymphopenia [Recovered/Resolved with Sequelae]
  - Lymphocyte count decreased [Unknown]

NARRATIVE: CASE EVENT DATE: 20230101
